FAERS Safety Report 7333001-4 (Version None)
Quarter: 2011Q1

REPORT INFORMATION
  Report Type: 
  Country: None (occurrence: None)
  Receive Date: 20110304
  Receipt Date: 20110302
  Transmission Date: 20110831
  Serious: No
  Sender: FDA-Public Use
  Company Number: US-TEVA-268824USA

PATIENT
  Sex: Female
  Weight: 78.542 kg

DRUGS (1)
  1. PLAN B ONE-STEP [Suspect]
     Indication: POST COITAL CONTRACEPTION
     Route: 048
     Dates: start: 20110224, end: 20110224

REACTIONS (3)
  - DIZZINESS [None]
  - VOMITING [None]
  - HEADACHE [None]
